FAERS Safety Report 9764331 (Version 2)
Quarter: 2014Q1

REPORT INFORMATION
  Report Type: Spontaneous
  Country: IT (occurrence: IT)
  Receive Date: 20131217
  Receipt Date: 20140205
  Transmission Date: 20141002
  Serious: Yes (Hospitalization, Other)
  Sender: FDA-Public Use
  Company Number: IT-AMGEN-ITASP2013087587

PATIENT
  Age: 69 Year
  Sex: Female
  Weight: 40 kg

DRUGS (7)
  1. XGEVA [Suspect]
     Indication: METASTASES TO BONE
     Dosage: 120 MG, CYCLICAL
     Route: 058
     Dates: start: 20130904
  2. PROVERA [Concomitant]
     Indication: BREAST CANCER
     Dosage: 500 MG, UNK
     Route: 048
     Dates: start: 20121126, end: 20131209
  3. CLEXANE [Concomitant]
     Indication: THROMBOSIS PROPHYLAXIS
     Dosage: UNK
     Route: 058
     Dates: start: 20120426, end: 20131209
  4. PARIET [Concomitant]
     Indication: GASTROOESOPHAGEAL REFLUX PROPHYLAXIS
     Dosage: 20 MG, UNK
     Route: 048
     Dates: start: 20120126, end: 20131209
  5. VITAMIN D                          /00107901/ [Concomitant]
  6. CONTRAMAL [Concomitant]
     Indication: METASTATIC PAIN
     Dosage: 40 DROPS, UNK
     Route: 048
     Dates: start: 20120126, end: 20131209
  7. CALCIUM [Concomitant]

REACTIONS (4)
  - Hypokalaemia [Recovered/Resolved]
  - Hypocalcaemia [Recovered/Resolved]
  - Hypoaesthesia oral [Recovered/Resolved]
  - Asthenia [Recovered/Resolved]
